FAERS Safety Report 4808722-5 (Version None)
Quarter: 2005Q4

REPORT INFORMATION
  Report Type: 
  Country: None (occurrence: None)
  Receive Date: 20051021
  Receipt Date: 20031015
  Transmission Date: 20060501
  Serious: Yes (Other)
  Sender: FDA-Public Use
  Company Number: EWC031036606

PATIENT
  Age: 41 Year
  Sex: Male

DRUGS (7)
  1. OLANZAPINE [Suspect]
     Indication: SCHIZOPHRENIA, PARANOID TYPE
     Dosage: 30 MG/DAY
     Dates: start: 20030617, end: 20030703
  2. RISPERDAL [Concomitant]
  3. AKINETON RETARD (BIPERIDEN HDYROCHLORIDE) [Concomitant]
  4. COMBIVIR [Concomitant]
  5. VIRACEPT (NELFINAVR MESILATE) [Concomitant]
  6. STILNOX (ZOLPIDEM) [Concomitant]
  7. LORAZEPAM [Concomitant]

REACTIONS (3)
  - ANAEMIA [None]
  - LEUKOPENIA [None]
  - PRESCRIBED OVERDOSE [None]
